FAERS Safety Report 20194044 (Version 1)
Quarter: 2021Q4

REPORT INFORMATION
  Report Type: Spontaneous
  Country: CN (occurrence: CN)
  Receive Date: 20211216
  Receipt Date: 20211216
  Transmission Date: 20220303
  Serious: Yes (Other)
  Sender: FDA-Public Use
  Company Number: CN-FRESENIUS KABI-FK202113801

PATIENT
  Age: 19 Day
  Sex: Male
  Weight: 2.44 kg

DRUGS (7)
  1. SMOFLIPID [Suspect]
     Active Substance: FISH OIL\MEDIUM-CHAIN TRIGLYCERIDES\OLIVE OIL\SOYBEAN OIL
     Indication: Premature baby
     Dosage: THE DOSAGE FORM OF ADMIN IS INJECTION IN SOURCES.
     Route: 042
     Dates: start: 20210806, end: 20210807
  2. SMOFLIPID [Suspect]
     Active Substance: FISH OIL\MEDIUM-CHAIN TRIGLYCERIDES\OLIVE OIL\SOYBEAN OIL
     Dosage: THE DOSAGE FORM OF ADMIN IS INJECTION IN SOURCES.
     Route: 042
     Dates: start: 20210808, end: 20210810
  3. SMOFLIPID [Suspect]
     Active Substance: FISH OIL\MEDIUM-CHAIN TRIGLYCERIDES\OLIVE OIL\SOYBEAN OIL
     Dosage: THE DOSAGE FORM OF ADMIN IS INJECTION IN SOURCES.
     Route: 042
     Dates: start: 20210811, end: 20210822
  4. SMOFLIPID [Suspect]
     Active Substance: FISH OIL\MEDIUM-CHAIN TRIGLYCERIDES\OLIVE OIL\SOYBEAN OIL
     Dosage: THE DOSAGE FORM OF ADMIN IS INJECTION IN SOURCES.
     Route: 042
     Dates: start: 20210823, end: 20210829
  5. SMOFLIPID [Suspect]
     Active Substance: FISH OIL\MEDIUM-CHAIN TRIGLYCERIDES\OLIVE OIL\SOYBEAN OIL
     Dosage: THE DOSAGE FORM OF ADMIN IS INJECTION IN SOURCES.
     Route: 042
     Dates: start: 20210830, end: 20210923
  6. SMOFLIPID [Suspect]
     Active Substance: FISH OIL\MEDIUM-CHAIN TRIGLYCERIDES\OLIVE OIL\SOYBEAN OIL
     Dosage: THE DOSAGE FORM OF ADMIN IS INJECTION IN SOURCES.
     Route: 042
     Dates: start: 20210924, end: 20210927
  7. SMOFLIPID [Suspect]
     Active Substance: FISH OIL\MEDIUM-CHAIN TRIGLYCERIDES\OLIVE OIL\SOYBEAN OIL
     Dosage: THE DOSAGE FORM OF ADMIN IS INJECTION IN SOURCES.
     Route: 042
     Dates: start: 20211005, end: 20211008

REACTIONS (5)
  - Cholestasis [Recovering/Resolving]
  - Yellow skin [Recovering/Resolving]
  - Transaminases increased [Recovering/Resolving]
  - Blood bilirubin increased [Recovering/Resolving]
  - Total bile acids increased [Recovering/Resolving]

NARRATIVE: CASE EVENT DATE: 20210824
